FAERS Safety Report 5330321-X (Version None)
Quarter: 2007Q2

REPORT INFORMATION
  Report Type: 
  Country: None (occurrence: None)
  Receive Date: 20070521
  Receipt Date: 20070509
  Transmission Date: 20071010
  Serious: Yes (Disabling, Other)
  Sender: FDA-Public Use
  Company Number: GR-PFIZER INC-2007029409

PATIENT
  Age: 60 Year
  Sex: Male
  Weight: 58 kg

DRUGS (3)
  1. METHYLPREDNISOLONE 16MG TAB [Suspect]
     Indication: MULTIPLE MYELOMA
     Route: 048
  2. CAELYX [Suspect]
     Indication: MULTIPLE MYELOMA
     Route: 042
  3. ONCOVIN [Suspect]
     Indication: MULTIPLE MYELOMA
     Route: 042

REACTIONS (1)
  - PERIPHERAL MOTOR NEUROPATHY [None]
